FAERS Safety Report 13382158 (Version 11)
Quarter: 2020Q4

REPORT INFORMATION
  Report Type: Other
  Country: US (occurrence: US)
  Receive Date: 20170329
  Receipt Date: 20201120
  Transmission Date: 20210113
  Serious: Yes (Hospitalization, Other)
  Sender: FDA-Public Use
  Company Number: US-ROCHE-1911809

PATIENT
  Age: 35 Year
  Sex: Female

DRUGS (6)
  1. XOLAIR [Suspect]
     Active Substance: OMALIZUMAB
     Route: 058
     Dates: start: 20170303
  2. CATHFLO ACTIVASE [Suspect]
     Active Substance: ALTEPLASE
     Indication: DEVICE RELATED THROMBOSIS
     Dosage: 200 MG VIAL
     Route: 065
     Dates: start: 20190322
  3. XOLAIR [Suspect]
     Active Substance: OMALIZUMAB
     Route: 058
     Dates: start: 20170302
  4. XOLAIR [Suspect]
     Active Substance: OMALIZUMAB
     Indication: MENORRHAGIA
     Route: 058
     Dates: start: 20170301
  5. XOLAIR [Suspect]
     Active Substance: OMALIZUMAB
     Indication: IMMUNE SYSTEM DISORDER
     Route: 058
     Dates: start: 20160120
  6. HAEGARDA [Concomitant]
     Active Substance: HUMAN C1-ESTERASE INHIBITOR
     Indication: PRODUCT USED FOR UNKNOWN INDICATION
     Route: 065

REACTIONS (10)
  - Pharyngeal swelling [Unknown]
  - Feeding disorder [Unknown]
  - Swelling [Unknown]
  - Swollen tongue [Unknown]
  - Blood potassium decreased [Unknown]
  - Abdominal distension [Unknown]
  - Off label use [Unknown]
  - Swelling face [Unknown]
  - Hereditary angioedema [Unknown]
  - Intentional product use issue [Unknown]

NARRATIVE: CASE EVENT DATE: 20170424
